FAERS Safety Report 5706665-6 (Version None)
Quarter: 2008Q2

REPORT INFORMATION
  Report Type: 
  Country: None (occurrence: None)
  Receive Date: 20080416
  Receipt Date: 20080414
  Transmission Date: 20081010
  Serious: Yes (Other)
  Sender: FDA-Public Use
  Company Number: AU-RANBAXY-2008R3-13689

PATIENT

DRUGS (1)
  1. FLUCONAZOLE [Suspect]
     Indication: CANDIDIASIS
     Dosage: 150 MG, SINGLE
     Route: 048
     Dates: start: 20080302, end: 20080302

REACTIONS (6)
  - CHEST DISCOMFORT [None]
  - DERMATITIS BULLOUS [None]
  - DYSPNOEA [None]
  - PHARYNGOLARYNGEAL PAIN [None]
  - PRURITUS [None]
  - URTICARIA [None]
